FAERS Safety Report 25248369 (Version 2)
Quarter: 2025Q2

REPORT INFORMATION
  Report Type: Report from Study
  Country: CN (occurrence: CN)
  Receive Date: 20250429
  Receipt Date: 20250610
  Transmission Date: 20250717
  Serious: Yes (Death, Other)
  Sender: TAKEDA
  Company Number: CN-TAKEDA-2025TUS035524

PATIENT
  Age: 84 Year
  Sex: Male
  Weight: 64 kg

DRUGS (1)
  1. IXAZOMIB [Suspect]
     Active Substance: IXAZOMIB
     Indication: Plasma cell myeloma
     Dosage: UNK, UNK,1/WEEK
     Dates: start: 20240530, end: 2024

REACTIONS (2)
  - Plasma cell myeloma [Fatal]
  - Off label use [Unknown]

NARRATIVE: CASE EVENT DATE: 20240530
